FAERS Safety Report 16089849 (Version 1)
Quarter: 2019Q1

REPORT INFORMATION
  Report Type: Spontaneous
  Country: US (occurrence: US)
  Receive Date: 20190215
  Receipt Date: 20190215
  Transmission Date: 20190418
  Serious: Yes (Hospitalization)
  Sender: FDA-Public Use
  Company Number: None

PATIENT
  Age: 86 Year
  Sex: Female

DRUGS (21)
  1. ARIMIDEX [Suspect]
     Active Substance: ANASTROZOLE
  2. ASPIRIN. [Concomitant]
     Active Substance: ASPIRIN
  3. KIONEX [Concomitant]
     Active Substance: SODIUM POLYSTYRENE SULFONATE
  4. SIMVASTATIN. [Concomitant]
     Active Substance: SIMVASTATIN
  5. VITAMIN C [Concomitant]
     Active Substance: ASCORBIC ACID
  6. ALLOPUXINOL [Concomitant]
  7. VITAMIN D [Concomitant]
     Active Substance: CHOLECALCIFEROL
  8. ZOCOR [Concomitant]
     Active Substance: SIMVASTATIN
  9. AURYXIA [Concomitant]
     Active Substance: TETRAFERRIC TRICITRATE DECAHYDRATE
  10. HECTOROL [Concomitant]
     Active Substance: DOXERCALCIFEROL
  11. DOXERCALCIF [Concomitant]
  12. GLIPIZIDE. [Concomitant]
     Active Substance: GLIPIZIDE
  13. JANUVIA [Concomitant]
     Active Substance: SITAGLIPTIN PHOSPHATE
  14. COREG [Concomitant]
     Active Substance: CARVEDILOL
  15. NORVASC [Concomitant]
     Active Substance: AMLODIPINE BESYLATE
  16. IRON [Concomitant]
     Active Substance: IRON
  17. LASIX [Concomitant]
     Active Substance: FUROSEMIDE
  18. LISINOPRIL. [Concomitant]
     Active Substance: LISINOPRIL
  19. FISH OIL [Concomitant]
     Active Substance: FISH OIL
  20. PROCRIT [Suspect]
     Active Substance: ERYTHROPOIETIN
     Indication: CHRONIC KIDNEY DISEASE
     Route: 058
     Dates: start: 20110401
  21. CYTRA-2 [Concomitant]
     Active Substance: CITRIC ACID MONOHYDRATE\TRISODIUM CITRATE DIHYDRATE

REACTIONS (2)
  - Malaise [None]
  - Dialysis [None]
